FAERS Safety Report 22299720 (Version 7)
Quarter: 2023Q4

REPORT INFORMATION
  Report Type: Spontaneous
  Country: US (occurrence: US)
  Receive Date: 20230509
  Receipt Date: 20231122
  Transmission Date: 20240110
  Serious: Yes (Other)
  Sender: FDA-Public Use
  Company Number: US-PFIZER INC-PV202300080761

PATIENT
  Age: 70 Year
  Sex: Female

DRUGS (2)
  1. XELJANZ [Suspect]
     Active Substance: TOFACITINIB CITRATE
     Indication: Rheumatoid arthritis
     Dosage: 5 MG, 2X/DAY
  2. XELJANZ [Suspect]
     Active Substance: TOFACITINIB CITRATE
     Dosage: 5 MG, 1X/DAY

REACTIONS (17)
  - Cardiac disorder [Unknown]
  - Rheumatoid arthritis [Unknown]
  - Renal impairment [Unknown]
  - Joint swelling [Unknown]
  - Musculoskeletal stiffness [Unknown]
  - Tremor [Unknown]
  - Dizziness [Unknown]
  - Pain in extremity [Unknown]
  - Peripheral swelling [Unknown]
  - Heart rate irregular [Unknown]
  - Hypoaesthesia [Unknown]
  - Dyspnoea [Unknown]
  - Myalgia [Unknown]
  - Asthenia [Unknown]
  - Nodule [Unknown]
  - Arthralgia [Unknown]
  - Chromaturia [Unknown]
